FAERS Safety Report 6559363-3 (Version None)
Quarter: 2010Q1

REPORT INFORMATION
  Report Type: 
  Country: None (occurrence: None)
  Receive Date: 20100129
  Receipt Date: 20090831
  Transmission Date: 20100710
  Serious: No
  Sender: FDA-Public Use
  Company Number: US-ABBOTT-09P-163-0594844-00

PATIENT
  Sex: Female
  Weight: 104.42 kg

DRUGS (7)
  1. HUMIRA [Suspect]
     Indication: RHEUMATOID ARTHRITIS
     Route: 058
     Dates: start: 20060601, end: 20090601
  2. HUMIRA [Suspect]
     Route: 058
     Dates: start: 20090601
  3. FLAXSEED OIL [Concomitant]
     Indication: MEDICAL DIET
  4. FISH OIL [Concomitant]
     Indication: MEDICAL DIET
  5. MULTI-VITAMIN [Concomitant]
     Indication: VITAMIN SUPPLEMENTATION
     Route: 048
  6. UNKNOWN PAIN MEDICATION [Concomitant]
     Indication: ARTHRALGIA
  7. JOINT SOOTHER [Concomitant]
     Indication: MEDICAL DIET

REACTIONS (2)
  - DRUG DOSE OMISSION [None]
  - PAIN [None]
